FAERS Safety Report 6212845-6 (Version None)
Quarter: 2009Q2

REPORT INFORMATION
  Report Type: 
  Country: None (occurrence: None)
  Receive Date: 20090601
  Receipt Date: 20090519
  Transmission Date: 20091009
  Serious: Yes (Other)
  Sender: FDA-Public Use
  Company Number: ADR1942009

PATIENT
  Age: 66 Year
  Sex: Female
  Weight: 83.9154 kg

DRUGS (4)
  1. TOPIRAMATE [Suspect]
     Indication: CONVULSION
     Dosage: 25 MG BID, ORAL
     Route: 048
     Dates: start: 20090501, end: 20090520
  2. SINEMET [Concomitant]
  3. METOPROLOL SUCCINATE [Concomitant]
  4. CLONAZEPAM [Concomitant]

REACTIONS (4)
  - DIPLOPIA [None]
  - EYELID PTOSIS [None]
  - PRODUCT SUBSTITUTION ISSUE [None]
  - VISUAL IMPAIRMENT [None]
